FAERS Safety Report 24121266 (Version 1)
Quarter: 2024Q3

REPORT INFORMATION
  Report Type: Spontaneous
  Country: US (occurrence: None)
  Receive Date: 20240718
  Receipt Date: 20240718
  Transmission Date: 20241017
  Serious: Yes (Life-Threatening)
  Sender: Public
  Company Number: None

PATIENT
  Sex: Female

DRUGS (1)
  1. VITAMIN K1 [Suspect]
     Active Substance: PHYTONADIONE
     Dosage: FREQUENCY : DAILY;?
     Route: 042
     Dates: start: 20240710, end: 20240710

REACTIONS (3)
  - Anaphylactic reaction [None]
  - Back pain [None]
  - Chest discomfort [None]

NARRATIVE: CASE EVENT DATE: 20240710
